FAERS Safety Report 23508604 (Version 1)
Quarter: 2024Q1

REPORT INFORMATION
  Report Type: Spontaneous
  Country: BR (occurrence: BR)
  Receive Date: 20240209
  Receipt Date: 20240209
  Transmission Date: 20240410
  Serious: Yes (Hospitalization, Other)
  Sender: FDA-Public Use
  Company Number: BR-BAYER-2024A017815

PATIENT
  Age: 66 Year
  Sex: Male

DRUGS (9)
  1. NEXAVAR [Suspect]
     Active Substance: SORAFENIB
     Indication: Hepatic cancer
     Dosage: 4 TABLETS A DAY
     Dates: start: 2023, end: 20231119
  2. NEXAVAR [Suspect]
     Active Substance: SORAFENIB
     Indication: Hepatic cancer
     Dosage: 2 TABLETS A DAY
     Dates: start: 20231119
  3. NEXAVAR [Suspect]
     Active Substance: SORAFENIB
     Indication: Hepatic cancer
     Dosage: 3 TABLETS A DAY
  4. NEXAVAR [Suspect]
     Active Substance: SORAFENIB
     Indication: Hepatic cancer
     Dosage: 4 TABLETS A DAY
  5. GLIFAGE [METFORMIN HYDROCHLORIDE] [Concomitant]
     Indication: Diabetes mellitus
     Dosage: 2 TABLETS A DAY
     Dates: start: 2021
  6. ENALAPRIL [Concomitant]
     Active Substance: ENALAPRIL
     Indication: Hypertension
     Dosage: 2 TABLETS A DAY
  7. ENALAPRIL MALEATE [Concomitant]
     Active Substance: ENALAPRIL MALEATE
     Indication: Hypertension
     Dosage: 2 TABLETS A DAY
  8. HYDROCHLOROTHIAZIDE [Concomitant]
     Active Substance: HYDROCHLOROTHIAZIDE
     Indication: Hypertension
     Dosage: TAKEN 1 TABLET A DAY
  9. AMLODIPINE [Concomitant]
     Active Substance: AMLODIPINE BESYLATE
     Indication: Hypertension
     Dosage: 5 MG 1 TABLET A DAY

REACTIONS (11)
  - Nodule [Unknown]
  - Malaise [None]
  - Cachexia [Not Recovered/Not Resolved]
  - Scab [None]
  - Scab [Not Recovered/Not Resolved]
  - Hyperkeratosis [Recovering/Resolving]
  - Glossitis [Not Recovered/Not Resolved]
  - Pruritus [Not Recovered/Not Resolved]
  - Erythema [Not Recovered/Not Resolved]
  - Blood pressure increased [Not Recovered/Not Resolved]
  - Weight decreased [None]

NARRATIVE: CASE EVENT DATE: 20230923
